FAERS Safety Report 4870968-8 (Version None)
Quarter: 2005Q4

REPORT INFORMATION
  Report Type: 
  Country: None (occurrence: None)
  Receive Date: 20051228
  Receipt Date: 20051213
  Transmission Date: 20060501
  Serious: Yes (Other)
  Sender: FDA-Public Use
  Company Number: USA0511112765

PATIENT
  Age: 72 Year
  Sex: Female
  Weight: 72.6 kg

DRUGS (1)
  1. EVISTA [Suspect]
     Indication: OSTEOPOROSIS
     Dates: start: 20000101, end: 20050101

REACTIONS (5)
  - CATARACT [None]
  - EYE OEDEMA [None]
  - MIGRAINE [None]
  - RETINAL VASCULAR OCCLUSION [None]
  - TRANSIENT ISCHAEMIC ATTACK [None]
